FAERS Safety Report 7352341-6 (Version None)
Quarter: 2011Q1

REPORT INFORMATION
  Report Type: 
  Country: None (occurrence: None)
  Receive Date: 20110315
  Receipt Date: 20110307
  Transmission Date: 20110831
  Serious: Yes (Hospitalization)
  Sender: FDA-Public Use
  Company Number: US-ELI_LILLY_AND_COMPANY-US201007003555

PATIENT
  Sex: Female

DRUGS (16)
  1. FORTEO [Suspect]
     Indication: OSTEOPOROSIS
     Dosage: 20 UG, DAILY (1/D)
     Route: 065
     Dates: start: 20100514, end: 20110127
  2. PLAQUENIL [Concomitant]
     Dosage: UNK, UNKNOWN
     Route: 065
  3. CALCIUM [Concomitant]
     Dosage: UNK, UNKNOWN
     Route: 065
  4. ALPHAGAN [Concomitant]
  5. HYZAAR [Concomitant]
     Dosage: UNK, UNKNOWN
     Route: 065
  6. ZANTAC [Concomitant]
     Dosage: UNK, UNKNOWN
     Route: 065
  7. BILBERRY [Concomitant]
     Dosage: UNK, UNKNOWN
     Route: 065
  8. LABETALOL HCL [Concomitant]
     Dosage: UNK, UNKNOWN
     Route: 065
  9. AMLODIPINE [Concomitant]
     Dosage: UNK, UNKNOWN
     Route: 065
  10. MULTIVITAMIN [Concomitant]
     Dosage: UNK, UNKNOWN
     Route: 065
  11. FORTEO [Suspect]
     Dosage: 20 UG, DAILY (1/D)
     Dates: start: 20110207
  12. LUMIGAN [Concomitant]
     Dosage: UNK, UNKNOWN
     Route: 065
  13. PREDNISONE TAB [Concomitant]
     Dosage: UNK, UNKNOWN
     Route: 065
  14. CALCIUM [Concomitant]
     Dates: start: 20110203
  15. GABAPENTINE [Concomitant]
     Dosage: UNK, UNKNOWN
     Route: 065
  16. TIMOLOL MALEATE [Concomitant]
     Dosage: UNK, UNKNOWN
     Route: 065

REACTIONS (7)
  - TOOTH EXTRACTION [None]
  - LUNG INFECTION [None]
  - BLOOD CALCIUM ABNORMAL [None]
  - COUGH [None]
  - NASOPHARYNGITIS [None]
  - RIB FRACTURE [None]
  - ASTHENIA [None]
